FAERS Safety Report 24895253 (Version 1)
Quarter: 2025Q1

REPORT INFORMATION
  Report Type: Spontaneous
  Country: RU (occurrence: RU)
  Receive Date: 20250128
  Receipt Date: 20250128
  Transmission Date: 20250409
  Serious: Yes (Life-Threatening, Other)
  Sender: PFIZER
  Company Number: RU-PFIZER INC-PV202300102435

PATIENT
  Age: 8 Year

DRUGS (4)
  1. SOLU-MEDROL [Suspect]
     Active Substance: METHYLPREDNISOLONE SODIUM SUCCINATE
     Indication: Nephroblastoma
  2. BEVACIZUMAB [Suspect]
     Active Substance: BEVACIZUMAB
     Indication: Nephroblastoma
     Dosage: 15 MG/KG, WEEKLY/3 WEEKS
  3. PREDNISONE [Suspect]
     Active Substance: PREDNISONE
     Indication: Nephroblastoma
     Dosage: 1 MG/KG/D
  4. ECULIZUMAB [Concomitant]
     Active Substance: ECULIZUMAB
     Indication: Thrombotic microangiopathy
     Dosage: 600 MG/WEEK (INFUSION)

REACTIONS (2)
  - Drug ineffective for unapproved indication [Unknown]
  - Off label use [Unknown]
